FAERS Safety Report 24297869 (Version 2)
Quarter: 2025Q1

REPORT INFORMATION
  Report Type: Spontaneous
  Country: US (occurrence: US)
  Receive Date: 20240909
  Receipt Date: 20250321
  Transmission Date: 20250409
  Serious: No
  Sender: BRISTOL-MYERS SQUIBB COMPANY
  Company Number: US-BRISTOL-MYERS SQUIBB COMPANY-2024-142559

PATIENT
  Age: 77 Year
  Sex: Female
  Weight: 67.13 kg

DRUGS (2)
  1. IDHIFA [Suspect]
     Active Substance: ENASIDENIB MESYLATE
     Indication: Acute myeloid leukaemia
     Route: 048
     Dates: start: 20240209
  2. IDHIFA [Suspect]
     Active Substance: ENASIDENIB MESYLATE
     Route: 048
     Dates: start: 20240209

REACTIONS (5)
  - Fatigue [Unknown]
  - Depressed mood [Unknown]
  - Off label use [Unknown]
  - Thirst [Unknown]
  - Norovirus infection [Unknown]
